FAERS Safety Report 15772348 (Version 2)
Quarter: 2019Q1

REPORT INFORMATION
  Report Type: Spontaneous
  Country: MY (occurrence: MY)
  Receive Date: 20181228
  Receipt Date: 20190108
  Transmission Date: 20190417
  Serious: Yes (Other)
  Sender: FDA-Public Use
  Company Number: MY-LUPIN PHARMACEUTICALS INC.-2018-08967

PATIENT
  Age: 32 Year
  Sex: Female

DRUGS (12)
  1. RIFAMPIN. [Suspect]
     Active Substance: RIFAMPIN
     Dosage: SMALL INCREMENTAL DOSAGE ON THE FIRST DAY
     Route: 065
  2. AKURIT-4 [Suspect]
     Active Substance: ETHAMBUTOL HYDROCHLORIDE\ISONIAZID\PYRAZINAMIDE\RIFAMYCIN
     Indication: PULMONARY TUBERCULOSIS
     Dosage: UNK
     Route: 065
  3. ISONIAZID. [Suspect]
     Active Substance: ISONIAZID
     Dosage: RE-CHALLENGE
     Route: 065
  4. RIFAMPIN. [Suspect]
     Active Substance: RIFAMPIN
     Dosage: FULL DOSE ONCE DAILY ON THE FOURTH DAY
     Route: 065
  5. ISONIAZID. [Suspect]
     Active Substance: ISONIAZID
     Dosage: SMALL INCREMENTAL DOSAGE ON THE FIRST DAY
     Route: 065
  6. RIFAMPIN. [Suspect]
     Active Substance: RIFAMPIN
     Dosage: RE-CHALLENGE
     Route: 065
  7. RIFAMPIN. [Suspect]
     Active Substance: RIFAMPIN
     Dosage: SPLIT DOSAGE ON THE SECOND TO THIRD DAY
     Route: 065
  8. AKURIT-4 [Suspect]
     Active Substance: ETHAMBUTOL HYDROCHLORIDE\ISONIAZID\PYRAZINAMIDE\RIFAMYCIN
     Dosage: RE-CHALLENGE
     Route: 065
  9. ISONIAZID. [Suspect]
     Active Substance: ISONIAZID
     Dosage: FULL DOSE ONCE DAILY ON THE FOURTH DAY
     Route: 065
  10. RIFAMPIN. [Suspect]
     Active Substance: RIFAMPIN
     Indication: PULMONARY TUBERCULOSIS
     Dosage: UNK
     Route: 065
  11. ISONIAZID. [Suspect]
     Active Substance: ISONIAZID
     Indication: PULMONARY TUBERCULOSIS
     Dosage: UNK
     Route: 065
  12. ISONIAZID. [Suspect]
     Active Substance: ISONIAZID
     Dosage: SPLIT DOSAGE ON THE SECOND TO THIRD DAY
     Route: 065

REACTIONS (1)
  - Rash maculo-papular [Unknown]
